FAERS Safety Report 4562166-2 (Version None)
Quarter: 2005Q1

REPORT INFORMATION
  Report Type: 
  Country: None (occurrence: None)
  Receive Date: 20050121
  Receipt Date: 20050114
  Transmission Date: 20050727
  Serious: Yes (Hospitalization)
  Sender: FDA-Public Use
  Company Number: KII-2005-0014674

PATIENT
  Age: 72 Year
  Sex: Male

DRUGS (1)
  1. MORPHINE SULFATE [Suspect]
     Dosage: ORAL
     Route: 048

REACTIONS (2)
  - MEDICATION ERROR [None]
  - SOMNOLENCE [None]
